FAERS Safety Report 17112825 (Version 2)
Quarter: 2020Q1

REPORT INFORMATION
  Report Type: Spontaneous
  Country: US (occurrence: US)
  Receive Date: 20191204
  Receipt Date: 20200121
  Transmission Date: 20200409
  Serious: Yes (Hospitalization)
  Sender: FDA-Public Use
  Company Number: US-ARRAY-2019-06856

PATIENT

DRUGS (2)
  1. BRAFTOVI [Suspect]
     Active Substance: ENCORAFENIB
     Indication: MALIGNANT MELANOMA
     Dosage: 450 MG, QD
     Route: 048
  2. MEKTOVI [Suspect]
     Active Substance: BINIMETINIB
     Indication: MALIGNANT MELANOMA
     Dosage: UNK

REACTIONS (3)
  - Oral infection [Unknown]
  - Tooth extraction [Unknown]
  - Urinary tract infection [Unknown]
